FAERS Safety Report 18963050 (Version 1)
Quarter: 2021Q1

REPORT INFORMATION
  Report Type: Spontaneous
  Country: IN (occurrence: IN)
  Receive Date: 20210303
  Receipt Date: 20210303
  Transmission Date: 20210420
  Serious: Yes (Other)
  Sender: FDA-Public Use
  Company Number: IN-PFIZER INC-2021187812

PATIENT

DRUGS (1)
  1. INONZA [Suspect]
     Active Substance: INOTUZUMAB OZOGAMICIN

REACTIONS (3)
  - Off label use [Unknown]
  - Product use issue [Unknown]
  - Seizure [Unknown]
